FAERS Safety Report 8535459-1 (Version None)
Quarter: 2012Q3

REPORT INFORMATION
  Report Type: 
  Country: None (occurrence: None)
  Receive Date: 20120725
  Receipt Date: 20120711
  Transmission Date: 20120928
  Serious: Yes (Death, Other)
  Sender: FDA-Public Use
  Company Number: BR-RANBAXY-2012R5-58055

PATIENT
  Sex: Male
  Weight: 78 kg

DRUGS (4)
  1. OXCARBAZEPINE [Suspect]
     Indication: TRANSIENT ISCHAEMIC ATTACK
     Dosage: 300 MG, BID
     Route: 048
     Dates: start: 20110401, end: 20120709
  2. PHENOBARBITAL TAB [Concomitant]
     Indication: CONVULSION
     Dosage: 100 MG, BID
     Route: 065
  3. LOSARTAN POTASSIUM [Concomitant]
     Indication: HYPERTENSION
     Dosage: 50 MG, BID
     Route: 065
  4. ATENOLOL [Concomitant]
     Indication: HYPERTENSION
     Dosage: 50 MG, BID
     Route: 065

REACTIONS (4)
  - HEAD INJURY [None]
  - DRUG INEFFECTIVE [None]
  - CEREBRAL HAEMATOMA [None]
  - HEADACHE [None]
